FAERS Safety Report 10275751 (Version 1)
Quarter: 2014Q3

REPORT INFORMATION
  Report Type: Spontaneous
  Country: US (occurrence: US)
  Receive Date: 20140703
  Receipt Date: 20140703
  Transmission Date: 20150326
  Serious: Yes (Hospitalization)
  Sender: FDA-Public Use
  Company Number: US-JNJFOC-20140619716

PATIENT
  Age: 54 Year
  Sex: Male

DRUGS (4)
  1. SOVALDI [Suspect]
     Active Substance: SOFOSBUVIR
     Indication: CHRONIC HEPATITIS C
     Route: 065
     Dates: start: 20140430
  2. HYDROXYZINE HYDROCHLORIDE. [Concomitant]
     Active Substance: HYDROXYZINE HYDROCHLORIDE
     Route: 065
  3. METHADONE [Concomitant]
     Active Substance: METHADONE HYDROCHLORIDE
     Route: 065
  4. OLYSIO [Suspect]
     Active Substance: SIMEPREVIR
     Indication: CHRONIC HEPATITIS C
     Route: 065
     Dates: start: 20140430

REACTIONS (9)
  - Oedema peripheral [Unknown]
  - Dyspnoea [Unknown]
  - Hyperhidrosis [Unknown]
  - Abdominal distension [Unknown]
  - Irritability [Unknown]
  - Insomnia [Unknown]
  - Off label use [Unknown]
  - Abdominal pain [Unknown]
  - Panic attack [Unknown]

NARRATIVE: CASE EVENT DATE: 20140430
